FAERS Safety Report 20911605 (Version 1)
Quarter: 2022Q2

REPORT INFORMATION
  Report Type: Spontaneous
  Country: US (occurrence: US)
  Receive Date: 20220603
  Receipt Date: 20220603
  Transmission Date: 20220720
  Serious: No
  Sender: FDA-Public Use
  Company Number: US-AMGEN-USASP2022090234

PATIENT
  Age: 57 Year
  Sex: Male
  Weight: 79.83 kg

DRUGS (1)
  1. NEULASTA [Suspect]
     Active Substance: PEGFILGRASTIM
     Indication: Neutropenia
     Dosage: UNK
     Route: 065

REACTIONS (2)
  - Device use error [Unknown]
  - Magnetic resonance imaging [Unknown]

NARRATIVE: CASE EVENT DATE: 20220519
